FAERS Safety Report 4430581-3 (Version None)
Quarter: 2004Q3

REPORT INFORMATION
  Report Type: 
  Country: None (occurrence: None)
  Receive Date: 20040818
  Receipt Date: 20040803
  Transmission Date: 20050211
  Serious: Yes (Death, Hospitalization)
  Sender: FDA-Public Use
  Company Number: FR_040804566

PATIENT
  Age: 44 Year
  Sex: Male
  Weight: 80 kg

DRUGS (3)
  1. ZYPREXA [Suspect]
     Dates: start: 20040507, end: 20040507
  2. PRAZINIL (CARPIPRAMINE DIHYDROCHLORIDE) [Concomitant]
  3. PAROXETINE HCL [Concomitant]

REACTIONS (8)
  - BRAIN OEDEMA [None]
  - BUNDLE BRANCH BLOCK [None]
  - CEREBRAL HAEMORRHAGE [None]
  - CEREBROVASCULAR ACCIDENT [None]
  - ISCHAEMIC STROKE [None]
  - MULTIPLE DRUG OVERDOSE INTENTIONAL [None]
  - SUICIDE ATTEMPT [None]
  - THROMBOCYTOPENIA [None]
